FAERS Safety Report 7898986-6 (Version None)
Quarter: 2011Q4

REPORT INFORMATION
  Report Type: 
  Country: None (occurrence: None)
  Receive Date: 20111107
  Receipt Date: 20100621
  Transmission Date: 20120403
  Serious: No
  Sender: FDA-Public Use
  Company Number: US-BAYER-201026364NA

PATIENT
  Age: 64 Year
  Sex: Female

DRUGS (1)
  1. MENOSTAR [Suspect]

REACTIONS (2)
  - DEPRESSION [None]
  - HOT FLUSH [None]
